FAERS Safety Report 9720437 (Version 1)
Quarter: 2013Q4

REPORT INFORMATION
  Report Type: Spontaneous
  Country: BR (occurrence: BR)
  Receive Date: 20131129
  Receipt Date: 20131129
  Transmission Date: 20140711
  Serious: Yes (Other)
  Sender: FDA-Public Use
  Company Number: BR-ASTRAZENECA-2013SE86827

PATIENT
  Age: 698 Month
  Sex: Male
  Weight: 74 kg

DRUGS (5)
  1. SELOZOK [Suspect]
     Indication: CHEST PAIN
     Route: 048
     Dates: start: 200908
  2. ANCORON [Concomitant]
     Indication: ISCHAEMIC HEART DISEASE PROPHYLAXIS
     Route: 048
     Dates: start: 200908
  3. MONOCORDIL [Concomitant]
     Indication: ISCHAEMIC HEART DISEASE PROPHYLAXIS
     Dosage: EVERY 12 HOURS
     Route: 048
     Dates: start: 200908
  4. LIPITOR [Concomitant]
     Indication: BLOOD CHOLESTEROL INCREASED
     Route: 048
     Dates: start: 200908
  5. MAREVAN [Concomitant]
     Indication: ISCHAEMIC HEART DISEASE PROPHYLAXIS
     Route: 048
     Dates: start: 200908

REACTIONS (1)
  - Electrocardiogram ambulatory abnormal [Not Recovered/Not Resolved]
